FAERS Safety Report 17377315 (Version 1)
Quarter: 2020Q1

REPORT INFORMATION
  Report Type: Spontaneous
  Country: US (occurrence: US)
  Receive Date: 20200121
  Receipt Date: 20200121
  Transmission Date: 20200409
  Serious: No
  Sender: FDA-Public Use
  Company Number: None

PATIENT
  Age: 55 Year
  Sex: Male

DRUGS (5)
  1. 8 MILE [DEVICE\NICOTINE] [Suspect]
     Active Substance: DEVICE\NICOTINE
  2. ^ ^PURE MICHIGAN^- MASTER E-LIQUID 12G NICOTINE^ [Suspect]
     Active Substance: NICOTINE
  3. MR. VAPOR RAINBOW DROPS [DEVICE\NICOTINE] [Suspect]
     Active Substance: DEVICE\NICOTINE
  4. MARIJUANA HERB DEVICE USED: LOKEE BRAND VAPE^ [Suspect]
     Active Substance: CANNABIS SATIVA SUBSP. INDICA TOP\DEVICE
     Route: 055
  5. VOODOO [DEVICE\NICOTINE] [Suspect]
     Active Substance: DEVICE\NICOTINE

REACTIONS (1)
  - Respiratory disorder [None]
